FAERS Safety Report 7719565-7 (Version None)
Quarter: 2011Q3

REPORT INFORMATION
  Report Type: 
  Country: None (occurrence: None)
  Receive Date: 20110830
  Receipt Date: 20110822
  Transmission Date: 20111222
  Serious: Yes (Hospitalization, Other)
  Sender: FDA-Public Use
  Company Number: US-BAYER-201040022NA

PATIENT
  Age: 24 Year
  Sex: Female
  Weight: 63.492 kg

DRUGS (3)
  1. LOMOTIL [DIPHENOXYLATE HYDROCHLORIDE] [Concomitant]
     Dosage: UNK
  2. YAZ [Suspect]
     Dosage: UNK
     Dates: start: 20030101, end: 20051001
  3. YASMIN [Suspect]
     Indication: ACNE
     Dosage: UNK UNK, UNK
     Route: 048
     Dates: start: 20060830, end: 20070801

REACTIONS (4)
  - DEEP VEIN THROMBOSIS [None]
  - CHOLELITHIASIS [None]
  - THROMBOPHLEBITIS SUPERFICIAL [None]
  - GALLBLADDER DISORDER [None]
